FAERS Safety Report 8415838-3 (Version None)
Quarter: 2012Q2

REPORT INFORMATION
  Report Type: 
  Country: None (occurrence: None)
  Receive Date: 20120606
  Receipt Date: 20120604
  Transmission Date: 20120825
  Serious: Yes (Other)
  Sender: FDA-Public Use
  Company Number: DE-AMGEN-DEUSP2012034585

PATIENT
  Sex: Female

DRUGS (5)
  1. DOXORUBICIN HCL [Concomitant]
     Indication: BREAST CANCER
     Dosage: UNK UNK, Q3WK
  2. PACLITAXEL [Concomitant]
     Indication: BREAST CANCER
     Dosage: UNK UNK, QWK
  3. CYCLOPHOSPHAMIDE [Concomitant]
     Indication: BREAST CANCER
     Dosage: UNK UNK, Q3WK
  4. NEULASTA [Suspect]
     Indication: PROPHYLAXIS
  5. NEULASTA [Suspect]
     Indication: CHEMOTHERAPY
     Dosage: UNK

REACTIONS (1)
  - PNEUMONIA [None]
